FAERS Safety Report 10566799 (Version 1)
Quarter: 2014Q4

REPORT INFORMATION
  Report Type: Spontaneous
  Country: US (occurrence: US)
  Receive Date: 20141105
  Receipt Date: 20141105
  Transmission Date: 20150529
  Serious: Yes (Other)
  Sender: FDA-Public Use
  Company Number: US-BAYER-2014-157778

PATIENT
  Age: 32 Year
  Sex: Male

DRUGS (1)
  1. CIPRO [Suspect]
     Active Substance: CIPROFLOXACIN HYDROCHLORIDE
     Indication: PROSTATIC DISORDER
     Dosage: 500 MG, BID
     Route: 048
     Dates: start: 20131005, end: 20131016

REACTIONS (9)
  - Neck pain [None]
  - Tendon injury [None]
  - Facial pain [None]
  - Paraesthesia [None]
  - Drug prescribing error [None]
  - Arthralgia [None]
  - Gastritis erosive [None]
  - Pain in extremity [None]
  - Neuropathy peripheral [None]

NARRATIVE: CASE EVENT DATE: 20131005
